FAERS Safety Report 6178401-3 (Version None)
Quarter: 2009Q2

REPORT INFORMATION
  Report Type: 
  Country: None (occurrence: None)
  Receive Date: 20090504
  Receipt Date: 20080312
  Transmission Date: 20091009
  Serious: No
  Sender: FDA-Public Use
  Company Number: DE-ALEXION-A200700115

PATIENT

DRUGS (5)
  1. SOLIRIS [Suspect]
     Indication: PAROXYSMAL NOCTURNAL HAEMOGLOBINURIA
     Dosage: 600 MG, SINGLE
     Route: 042
     Dates: start: 20070830, end: 20070830
  2. SOLIRIS [Suspect]
     Dosage: 600 MG, SINGLE
     Route: 042
  3. SOLIRIS [Suspect]
     Dosage: 600 MG, SINGLE
     Route: 042
  4. SOLIRIS [Suspect]
     Dosage: 600 MG, SINGLE
     Route: 042
  5. SOLIRIS [Suspect]
     Dosage: 900 MG, SINGLE
     Route: 042

REACTIONS (7)
  - ARTHRALGIA [None]
  - ASTHENIA [None]
  - INFUSION RELATED REACTION [None]
  - JOINT STIFFNESS [None]
  - JOINT SWELLING [None]
  - MYALGIA [None]
  - RASH [None]
